FAERS Safety Report 16833110 (Version 2)
Quarter: 2019Q3

REPORT INFORMATION
  Report Type: Spontaneous
  Country: US (occurrence: US)
  Receive Date: 20190920
  Receipt Date: 20190920
  Transmission Date: 20191005
  Serious: No
  Sender: FDA-Public Use
  Company Number: US-MYLANLABS-2019M1084268

PATIENT
  Age: 89 Year
  Sex: Female
  Weight: 73 kg

DRUGS (2)
  1. WIXELA INHUB [Suspect]
     Active Substance: FLUTICASONE PROPIONATE\SALMETEROL XINAFOATE
     Indication: DYSPNOEA
     Dosage: 1 DOSAGE FORM, BID,ONE PUFF TWO TIMES PER DAY
     Route: 055
     Dates: start: 20190905
  2. RESCUE [Concomitant]
     Dosage: UNK

REACTIONS (5)
  - Product use in unapproved indication [Not Recovered/Not Resolved]
  - Product dose omission [Unknown]
  - Cough [Recovered/Resolved]
  - Device failure [Recovered/Resolved]
  - Dyspnoea [Recovered/Resolved]

NARRATIVE: CASE EVENT DATE: 20190905
